FAERS Safety Report 6999160-8 (Version None)
Quarter: 2010Q3

REPORT INFORMATION
  Report Type: 
  Country: None (occurrence: None)
  Receive Date: 20100920
  Receipt Date: 20100617
  Transmission Date: 20110219
  Serious: No
  Sender: FDA-Public Use
  Company Number: US-ASTRAZENECA-2008UW13262

PATIENT
  Age: 50 Year
  Sex: Male
  Weight: 73.9 kg

DRUGS (33)
  1. SEROQUEL [Suspect]
     Indication: INSOMNIA
     Route: 048
     Dates: start: 20010901
  2. SEROQUEL [Suspect]
     Indication: ANGER
     Route: 048
     Dates: start: 20010901
  3. SEROQUEL [Suspect]
     Indication: ANXIETY DISORDER
     Route: 048
     Dates: start: 20010901
  4. SEROQUEL [Suspect]
     Route: 048
     Dates: start: 20010901
  5. SEROQUEL [Suspect]
     Route: 048
     Dates: start: 20010901
  6. SEROQUEL [Suspect]
     Route: 048
     Dates: start: 20010901
  7. SEROQUEL [Suspect]
     Route: 048
     Dates: start: 20080101
  8. SEROQUEL [Suspect]
     Route: 048
     Dates: start: 20080101
  9. SEROQUEL [Suspect]
     Route: 048
     Dates: start: 20080101
  10. SEROQUEL [Suspect]
     Route: 048
  11. SEROQUEL [Suspect]
     Route: 048
  12. SEROQUEL [Suspect]
     Route: 048
  13. SEROQUEL [Suspect]
     Route: 048
     Dates: start: 20000101, end: 20100401
  14. SEROQUEL [Suspect]
     Route: 048
     Dates: start: 20000101, end: 20100401
  15. SEROQUEL [Suspect]
     Route: 048
     Dates: start: 20000101, end: 20100401
  16. SEROQUEL [Suspect]
     Route: 048
     Dates: start: 20100401, end: 20100613
  17. SEROQUEL [Suspect]
     Route: 048
     Dates: start: 20100401, end: 20100613
  18. SEROQUEL [Suspect]
     Route: 048
     Dates: start: 20100401, end: 20100613
  19. RISPERDAL [Concomitant]
  20. ADVAIR DISKUS 100/50 [Concomitant]
     Indication: ASTHMA
  21. NEXIUM [Concomitant]
  22. ULTRAM [Concomitant]
     Indication: PAIN
  23. FLOMAX [Concomitant]
     Indication: BLADDER DISORDER
  24. ZOCOR [Concomitant]
  25. WELLBUTRIN XL [Concomitant]
  26. LYRICA [Concomitant]
  27. OXCARBAZEPINE [Concomitant]
  28. LEXAPRO [Concomitant]
  29. NASONEX [Concomitant]
  30. DICOFENAULET [Concomitant]
     Indication: ARTHRITIS
  31. ARTHROTEC [Concomitant]
  32. XANAX [Concomitant]
  33. ALBUTEROL [Concomitant]

REACTIONS (12)
  - ADVERSE DRUG REACTION [None]
  - BLOOD CHOLESTEROL INCREASED [None]
  - DRUG DOSE OMISSION [None]
  - FATIGUE [None]
  - FEELING ABNORMAL [None]
  - HANGOVER [None]
  - INSOMNIA [None]
  - MALAISE [None]
  - MEMORY IMPAIRMENT [None]
  - SOMNOLENCE [None]
  - TREMOR [None]
  - WEIGHT INCREASED [None]
